FAERS Safety Report 7294104-6 (Version None)
Quarter: 2011Q1

REPORT INFORMATION
  Report Type: 
  Country: None (occurrence: None)
  Receive Date: 20110215
  Receipt Date: 20110207
  Transmission Date: 20110831
  Serious: Yes (Other)
  Sender: FDA-Public Use
  Company Number: US-PFIZER INC-2011027707

PATIENT
  Sex: Female
  Weight: 39.5 kg

DRUGS (8)
  1. XOPENEX [Suspect]
     Dosage: 0.63 MG/ 3ML; Q4H
     Route: 045
     Dates: start: 20101225, end: 20101226
  2. ROCEPHIN [Suspect]
     Indication: PNEUMONIA
     Dosage: UNK
     Route: 042
     Dates: start: 20101223
  3. ALBUTEROL [Concomitant]
     Dosage: UNK
  4. SOLU-MEDROL [Suspect]
     Indication: ASTHMA
     Dosage: 40 MG, UNK
     Route: 042
     Dates: start: 20101223
  5. XOPENEX [Suspect]
     Indication: ASTHMA
     Dosage: 1.25 MG/ 3ML; Q4H
     Route: 045
     Dates: start: 20101224, end: 20101225
  6. XOPENEX [Suspect]
     Indication: PNEUMONIA
     Dosage: 0.63 MG/ 3ML; Q4H
     Route: 045
     Dates: start: 20101223, end: 20101224
  7. ZANTAC [Suspect]
     Indication: ABDOMINAL PAIN
     Dosage: 40 MG, 3X/DAY
     Route: 042
     Dates: start: 20101224
  8. ZANTAC [Suspect]
     Indication: NAUSEA

REACTIONS (9)
  - WHEEZING [None]
  - DRUG INEFFECTIVE [None]
  - VISION BLURRED [None]
  - VISUAL IMPAIRMENT [None]
  - PANIC REACTION [None]
  - HALLUCINATION, VISUAL [None]
  - NAUSEA [None]
  - FEAR [None]
  - ABDOMINAL PAIN [None]
